FAERS Safety Report 7353403-X (Version None)
Quarter: 2011Q1

REPORT INFORMATION
  Report Type: 
  Country: None (occurrence: None)
  Receive Date: 20110315
  Receipt Date: 20110307
  Transmission Date: 20110831
  Serious: Yes (Hospitalization, Other)
  Sender: FDA-Public Use
  Company Number: BR-ABBOTT-10P-020-0689050-00

PATIENT
  Sex: Female
  Weight: 32.5 kg

DRUGS (12)
  1. RISEDRONATE [Concomitant]
     Indication: RHEUMATOID ARTHRITIS
     Route: 048
  2. DIPIVEFRINE [Concomitant]
     Indication: EYE LUBRICATION THERAPY
     Dates: start: 20100601
  3. CALCIFLEX [Concomitant]
     Indication: OSTEOPOROSIS
     Dates: start: 20110201
  4. HUMIRA [Suspect]
     Indication: RHEUMATOID ARTHRITIS
     Route: 058
     Dates: start: 20090101
  5. UNKNOWN DRUG [Concomitant]
     Indication: EYE PAIN
     Route: 047
  6. NIFEDIPINE [Concomitant]
     Indication: BLOOD PRESSURE ABNORMAL
     Route: 048
  7. REDRONATO [Concomitant]
     Indication: MUSCULOSKELETAL PAIN
     Route: 048
  8. UNKNOWN [Concomitant]
     Indication: HYPERTENSION
     Route: 048
  9. TIMOLOL MALEATE [Concomitant]
     Indication: EYE LUBRICATION THERAPY
     Dates: start: 20060101
  10. LACRIMA PLUS [Concomitant]
     Indication: EYE LUBRICATION THERAPY
     Dates: start: 20060101
  11. FRESH TEARS [Concomitant]
     Indication: EYE LUBRICATION THERAPY
  12. EPITEGEL [Concomitant]
     Indication: EYE LUBRICATION THERAPY
     Dates: start: 20100601

REACTIONS (12)
  - HYPOTENSION [None]
  - DYSPHAGIA [None]
  - INJECTION SITE SWELLING [None]
  - DIABETES MELLITUS [None]
  - INJECTION SITE VESICLES [None]
  - BLOOD GLUCOSE DECREASED [None]
  - BLOOD GLUCOSE INCREASED [None]
  - EMPHYSEMA [None]
  - LOSS OF CONSCIOUSNESS [None]
  - URINARY TRACT INFECTION [None]
  - INJECTION SITE ERYTHEMA [None]
  - ORAL DISORDER [None]
